FAERS Safety Report 17054828 (Version 2)
Quarter: 2019Q4

REPORT INFORMATION
  Report Type: Spontaneous
  Country: GB (occurrence: GB)
  Receive Date: 20191120
  Receipt Date: 20191126
  Transmission Date: 20200122
  Serious: Yes (Hospitalization)
  Sender: FDA-Public Use
  Company Number: GB-TAKEDA-THQ2010A00433

PATIENT
  Age: 49 Year
  Sex: Female

DRUGS (7)
  1. GLUCOPHAGE [Suspect]
     Active Substance: METFORMIN HYDROCHLORIDE
     Dosage: 2.55 GRAM, QD
     Route: 065
     Dates: start: 20091203
  2. BYETTA [Suspect]
     Active Substance: EXENATIDE
     Indication: TYPE 2 DIABETES MELLITUS
     Dosage: 10 MICROGRAM, QD
     Route: 058
     Dates: start: 20070622, end: 20091201
  3. BYETTA [Suspect]
     Active Substance: EXENATIDE
     Dosage: 10 UNK
     Route: 058
     Dates: start: 20091203
  4. ACTOS [Suspect]
     Active Substance: PIOGLITAZONE HYDROCHLORIDE
     Indication: TYPE 2 DIABETES MELLITUS
     Dosage: 15 MILLIGRAM, QD
     Route: 065
     Dates: start: 20091112, end: 20091201
  5. ACTOS [Suspect]
     Active Substance: PIOGLITAZONE HYDROCHLORIDE
     Dosage: 15 MILLIGRAM, QD
     Route: 065
     Dates: start: 20091203
  6. GLUCOPHAGE [Suspect]
     Active Substance: METFORMIN HYDROCHLORIDE
     Indication: TYPE 2 DIABETES MELLITUS
     Dosage: 2.55 GRAM, QD
     Route: 065
     Dates: start: 200605, end: 20091201
  7. BYETTA [Suspect]
     Active Substance: EXENATIDE
     Dosage: 5 MICROGRAM, QD
     Route: 058
     Dates: start: 20070524, end: 20070621

REACTIONS (1)
  - Salpingo-oophorectomy bilateral [Recovered/Resolved]

NARRATIVE: CASE EVENT DATE: 20091201
